FAERS Safety Report 23354240 (Version 1)
Quarter: 2024Q1

REPORT INFORMATION
  Report Type: Spontaneous
  Country: CA (occurrence: CA)
  Receive Date: 20240101
  Receipt Date: 20240101
  Transmission Date: 20240410
  Serious: Yes (Other)
  Sender: FDA-Public Use
  Company Number: CA-ABBVIE-5566875

PATIENT
  Age: 66 Year
  Sex: Female

DRUGS (2)
  1. URSO [Suspect]
     Active Substance: URSODIOL
     Indication: Product used for unknown indication
     Dosage: TIME INTERVAL: 0.33333333 DAYS
     Route: 048
  2. OCALIVA [Suspect]
     Active Substance: OBETICHOLIC ACID
     Indication: Primary biliary cholangitis
     Route: 065

REACTIONS (6)
  - Treatment noncompliance [Unknown]
  - Peripheral nerve operation [Unknown]
  - Nerve injury [Unknown]
  - Aspartate aminotransferase abnormal [Unknown]
  - Product dose omission issue [Unknown]
  - Blood alkaline phosphatase abnormal [Unknown]
